FAERS Safety Report 5454070-2 (Version None)
Quarter: 2007Q3

REPORT INFORMATION
  Report Type: 
  Country: None (occurrence: None)
  Receive Date: 20070917
  Receipt Date: 20070913
  Transmission Date: 20080115
  Serious: Yes (Life-Threatening)
  Sender: FDA-Public Use
  Company Number: AU-ASTRAZENECA-2007AP05771

PATIENT
  Age: 27491 Day
  Sex: Female
  Weight: 94 kg

DRUGS (4)
  1. CRESTOR [Suspect]
     Indication: METABOLIC DISORDER
     Route: 048
     Dates: start: 20070427, end: 20070709
  2. LUMIRACOXIB [Suspect]
     Indication: ARTHRALGIA
     Dates: start: 20070427, end: 20070709
  3. GLUCOSAMINE [Concomitant]
     Dosage: LONG TERM USAGE
  4. FISH OIL [Concomitant]
     Dosage: LONG TERM USAGE

REACTIONS (6)
  - ABDOMINAL DISCOMFORT [None]
  - HEPATIC FAILURE [None]
  - HEPATITIS [None]
  - JAUNDICE [None]
  - NAUSEA [None]
  - VOMITING [None]
